FAERS Safety Report 10601371 (Version 1)
Quarter: 2014Q4

REPORT INFORMATION
  Report Type: Spontaneous
  Country: US (occurrence: None)
  Receive Date: 20141121
  Receipt Date: 20141121
  Transmission Date: 20150529
  Serious: Yes (Other)
  Sender: FDA-Public Use
  Company Number: None

PATIENT
  Age: 36 Year
  Sex: Female
  Weight: 90.72 kg

DRUGS (4)
  1. NORCO [Suspect]
     Active Substance: ACETAMINOPHEN\HYDROCODONE BITARTRATE
     Indication: FIBROMYALGIA
     Dosage: 1 TO 2 PILLS AS NEEDED TAKEN BY MOUTH
     Route: 048
     Dates: start: 20141118, end: 20141119
  2. NORCO [Suspect]
     Active Substance: ACETAMINOPHEN\HYDROCODONE BITARTRATE
     Indication: ARTHRITIS
     Dosage: 1 TO 2 PILLS AS NEEDED TAKEN BY MOUTH
     Route: 048
     Dates: start: 20141118, end: 20141119
  3. NORCO [Suspect]
     Active Substance: ACETAMINOPHEN\HYDROCODONE BITARTRATE
     Indication: BACK PAIN
     Dosage: 1 TO 2 PILLS AS NEEDED TAKEN BY MOUTH
     Route: 048
     Dates: start: 20141118, end: 20141119
  4. NORCO [Suspect]
     Active Substance: ACETAMINOPHEN\HYDROCODONE BITARTRATE
     Indication: NECK PAIN
     Dosage: 1 TO 2 PILLS AS NEEDED TAKEN BY MOUTH
     Route: 048
     Dates: start: 20141118, end: 20141119

REACTIONS (4)
  - Muscle tightness [None]
  - Vomiting [None]
  - Drug ineffective [None]
  - Irritability [None]

NARRATIVE: CASE EVENT DATE: 20141118
